FAERS Safety Report 6428458-7 (Version None)
Quarter: 2009Q4

REPORT INFORMATION
  Report Type: 
  Country: None (occurrence: None)
  Receive Date: 20091105
  Receipt Date: 20091026
  Transmission Date: 20100525
  Serious: Yes (Other)
  Sender: FDA-Public Use
  Company Number: B0598574A

PATIENT
  Age: 44 Year
  Sex: Male

DRUGS (7)
  1. LAMIVUDINE [Suspect]
     Indication: HIV INFECTION
     Route: 065
  2. ZIDOVUDINE [Suspect]
     Indication: HIV INFECTION
     Route: 065
  3. EFAVIRENZ [Suspect]
     Indication: HIV INFECTION
  4. AMOXICILLIN AND CLAVULANATE POTASSIUM [Concomitant]
  5. RIFAMPICIN [Concomitant]
  6. CLARITHROMYCIN [Concomitant]
  7. COTRIM [Concomitant]

REACTIONS (4)
  - CONDITION AGGRAVATED [None]
  - IMMUNE RECONSTITUTION SYNDROME [None]
  - LUNG INFILTRATION [None]
  - SKIN LESION [None]
